FAERS Safety Report 5838002-0 (Version None)
Quarter: 2008Q3

REPORT INFORMATION
  Report Type: 
  Country: None (occurrence: None)
  Receive Date: 20080808
  Receipt Date: 20080207
  Transmission Date: 20090109
  Serious: No
  Sender: FDA-Public Use
  Company Number: A0709438A

PATIENT
  Sex: Female

DRUGS (1)
  1. PAXIL [Suspect]
     Indication: ANXIETY
     Route: 065
     Dates: start: 19980101

REACTIONS (5)
  - ANXIETY [None]
  - CARDIAC DISORDER [None]
  - IMMOBILE [None]
  - PARAESTHESIA [None]
  - WITHDRAWAL SYNDROME [None]
